FAERS Safety Report 6147143-2 (Version None)
Quarter: 2009Q2

REPORT INFORMATION
  Report Type: 
  Country: None (occurrence: None)
  Receive Date: 20090407
  Receipt Date: 20080328
  Transmission Date: 20091009
  Serious: Yes (Death)
  Sender: FDA-Public Use
  Company Number: US-TYCO HEALTHCARE/MALLINCKRODT-T200800610

PATIENT

DRUGS (1)
  1. METHADOSE [Suspect]

REACTIONS (1)
  - OVERDOSE [None]
